FAERS Safety Report 5678615-2 (Version None)
Quarter: 2008Q1

REPORT INFORMATION
  Report Type: 
  Country: None (occurrence: None)
  Receive Date: 20080325
  Receipt Date: 20080312
  Transmission Date: 20080703
  Serious: Yes (Hospitalization)
  Sender: FDA-Public Use
  Company Number: US-AMGEN-US269399

PATIENT
  Sex: Female

DRUGS (8)
  1. KINERET [Suspect]
     Indication: RHEUMATOID ARTHRITIS
     Route: 058
     Dates: start: 20020411, end: 20020503
  2. METHOTREXATE [Concomitant]
     Route: 065
     Dates: start: 20010717
  3. PREDNISONE TAB [Concomitant]
     Route: 065
     Dates: start: 20070327
  4. SEREVENT [Concomitant]
     Route: 055
     Dates: start: 20010717
  5. FOLIC ACID [Concomitant]
     Route: 065
     Dates: start: 20010918
  6. CELEBREX [Concomitant]
     Route: 065
     Dates: start: 20011121
  7. PREVACID [Concomitant]
     Route: 065
     Dates: start: 20010918
  8. PROVENTIL [Concomitant]
     Route: 055
     Dates: start: 20010717

REACTIONS (3)
  - ASTHMA [None]
  - RETROGRADE AMNESIA [None]
  - SOMNOLENCE [None]
